FAERS Safety Report 6557266-1 (Version None)
Quarter: 2010Q1

REPORT INFORMATION
  Report Type: 
  Country: None (occurrence: None)
  Receive Date: 20100129
  Receipt Date: 20100125
  Transmission Date: 20100710
  Serious: Yes (Hospitalization)
  Sender: FDA-Public Use
  Company Number: US-BIOGENIDEC-2008BI034334

PATIENT
  Age: 58 Year
  Sex: Female

DRUGS (3)
  1. AVONEX [Suspect]
     Indication: MULTIPLE SCLEROSIS
     Route: 030
     Dates: start: 20071214, end: 20081211
  2. AVONEX [Suspect]
     Route: 030
  3. COPAXONE [Concomitant]
     Indication: MULTIPLE SCLEROSIS

REACTIONS (5)
  - CONCUSSION [None]
  - FALL [None]
  - HEAD INJURY [None]
  - HEMIPARESIS [None]
  - SYNCOPE [None]
